FAERS Safety Report 13635884 (Version 1)
Quarter: 2017Q2

REPORT INFORMATION
  Report Type: Spontaneous
  Country: US (occurrence: US)
  Receive Date: 20170531
  Receipt Date: 20170531
  Transmission Date: 20170830
  Serious: No
  Sender: FDA-Public Use
  Company Number: US-ASTELLAS-1751033

PATIENT
  Age: 71 Year
  Sex: Female

DRUGS (10)
  1. PROCHLORPERAZINE. [Concomitant]
     Active Substance: PROCHLORPERAZINE
  2. PRAVASTATIN. [Concomitant]
     Active Substance: PRAVASTATIN
  3. METOPROLOL. [Concomitant]
     Active Substance: METOPROLOL
  4. FLECAINIDE [Concomitant]
     Active Substance: FLECAINIDE
  5. FISH OIL [Concomitant]
     Active Substance: FISH OIL
  6. TARCEVA [Suspect]
     Active Substance: ERLOTINIB HYDROCHLORIDE
     Indication: LUNG NEOPLASM MALIGNANT
     Dosage: 1 TABLET
     Route: 048
     Dates: start: 20160420
  7. VALACYCLOVIR [Concomitant]
     Active Substance: VALACYCLOVIR HYDROCHLORIDE
  8. COENZYME Q10 [Concomitant]
     Active Substance: UBIDECARENONE
  9. ASPIRIN. [Concomitant]
     Active Substance: ASPIRIN
  10. CITALOPRAM [Concomitant]
     Active Substance: CITALOPRAM HYDROBROMIDE

REACTIONS (3)
  - Rash [Unknown]
  - Dry mouth [Unknown]
  - Pruritus [Unknown]

NARRATIVE: CASE EVENT DATE: 20160429
